FAERS Safety Report 4802331-X (Version None)
Quarter: 2005Q4

REPORT INFORMATION
  Report Type: 
  Country: None (occurrence: None)
  Receive Date: 20051014
  Receipt Date: 20041018
  Transmission Date: 20060501
  Serious: Yes (Hospitalization, Other)
  Sender: FDA-Public Use
  Company Number: 2004075225

PATIENT
  Age: 42 Year
  Sex: Female
  Weight: 52.1637 kg

DRUGS (5)
  1. NEURONTIN [Suspect]
     Indication: BIPOLAR DISORDER
     Dosage: 800 MG (800 MG, 1 IN 1 D), ORAL
     Route: 048
     Dates: start: 20000303, end: 20010201
  2. CLONAZEPAM [Concomitant]
  3. TOPIRAMATE [Concomitant]
  4. DIAZEPAM [Concomitant]
  5. QUETIAPINE FUMARATE [Concomitant]

REACTIONS (9)
  - AFFECT LABILITY [None]
  - AGGRESSION [None]
  - EUPHORIC MOOD [None]
  - HOT FLUSH [None]
  - MENOPAUSE [None]
  - PAIN [None]
  - SUICIDAL IDEATION [None]
  - SUICIDE ATTEMPT [None]
  - VOMITING [None]
